FAERS Safety Report 18322996 (Version 2)
Quarter: 2020Q4

REPORT INFORMATION
  Report Type: Spontaneous
  Country: LB (occurrence: LB)
  Receive Date: 20200928
  Receipt Date: 20201112
  Transmission Date: 20210113
  Serious: Yes (Hospitalization, Other)
  Sender: FDA-Public Use
  Company Number: LB-BRISTOL-MYERS SQUIBB COMPANY-BMS-2020-077163

PATIENT
  Age: 75 Year
  Sex: Male

DRUGS (1)
  1. OPDIVO [Suspect]
     Active Substance: NIVOLUMAB
     Indication: NON-SMALL CELL LUNG CANCER
     Dosage: 240 MILLIGRAM, Q3WK
     Route: 065
     Dates: start: 20190827

REACTIONS (3)
  - Off label use [Unknown]
  - Localised oedema [Unknown]
  - Malignant neoplasm progression [Unknown]
